FAERS Safety Report 10131076 (Version 1)
Quarter: 2014Q2

REPORT INFORMATION
  Report Type: Spontaneous
  Country: US (occurrence: None)
  Receive Date: 20140425
  Receipt Date: 20140425
  Transmission Date: 20141212
  Serious: Yes (Death)
  Sender: FDA-Public Use
  Company Number: None

PATIENT
  Age: 79 Year
  Sex: Female
  Weight: 130 kg

DRUGS (27)
  1. ENOXAPARIN [Suspect]
     Indication: ATRIAL FIBRILLATION
     Route: 058
     Dates: start: 20140205, end: 20140212
  2. ACETAMINOPHEN [Concomitant]
  3. FIORICET [Concomitant]
  4. ALBUTEROL [Concomitant]
  5. ALLOPURINOL [Concomitant]
  6. XANAX [Concomitant]
  7. AMITRIPTYLINE [Concomitant]
  8. BETHANECHOL [Concomitant]
  9. BISACODYL SUPPOSITORY [Concomitant]
  10. AZOPT EYE DROPS [Concomitant]
  11. PARAFON FORTE [Concomitant]
  12. CHOCHICINE [Concomitant]
  13. FLEXERIL [Concomitant]
  14. DOCUSATE [Concomitant]
  15. IRON TABLETS [Concomitant]
  16. FLONASE [Concomitant]
  17. ADVAIR INHALER [Concomitant]
  18. HYDRALAZINE [Concomitant]
  19. MOM [Concomitant]
  20. NAPROSYN [Concomitant]
  21. OMEPRAZOLE [Concomitant]
  22. OXYCODONE [Concomitant]
  23. PREDNISONE [Concomitant]
  24. SENNA S [Concomitant]
  25. TOPAMAX [Concomitant]
  26. TRAVATAN OPTHALMIC SOLUTION [Concomitant]
  27. PPD SKIN TEST [Concomitant]

REACTIONS (1)
  - Retroperitoneal haemorrhage [None]
